FAERS Safety Report 8491849-7 (Version None)
Quarter: 2012Q3

REPORT INFORMATION
  Report Type: 
  Country: None (occurrence: None)
  Receive Date: 20120706
  Receipt Date: 20110719
  Transmission Date: 20120928
  Serious: No
  Sender: FDA-Public Use
  Company Number: US-GLAXOSMITHKLINE-A0937603A

PATIENT
  Sex: Male

DRUGS (1)
  1. FLOVENT [Suspect]
     Indication: BRONCHITIS
     Dosage: 44MCG UNKNOWN
     Route: 055

REACTIONS (6)
  - OROPHARYNGEAL PAIN [None]
  - CHILLS [None]
  - DYSPHONIA [None]
  - ADVERSE DRUG REACTION [None]
  - HEADACHE [None]
  - DRUG INTOLERANCE [None]
